FAERS Safety Report 16109960 (Version 1)
Quarter: 2019Q1

REPORT INFORMATION
  Report Type: Spontaneous
  Country: DE (occurrence: DE)
  Receive Date: 20190325
  Receipt Date: 20190325
  Transmission Date: 20190418
  Serious: Yes (Other)
  Sender: FDA-Public Use
  Company Number: DE-DEXPHARM-20190199

PATIENT
  Age: 73 Year
  Sex: Female
  Weight: 60 kg

DRUGS (5)
  1. OMEP 40 MG [Suspect]
     Active Substance: OMEPRAZOLE
     Indication: GASTRITIS
     Dosage: 1-0-1
     Route: 048
     Dates: start: 201809, end: 201901
  2. NEBIVOLOL 5 MG [Concomitant]
     Active Substance: NEBIVOLOL
     Indication: HYPERTENSION
     Dosage: 1-0-0, CONTINUOUS MEDICATION
     Route: 048
  3. L-THYROXIN 125 ?G [Concomitant]
     Dosage: 0-0-1, DAUERMEDIKATION
     Route: 048
     Dates: start: 1987
  4. ASPIRIN. [Suspect]
     Active Substance: ASPIRIN
     Dosage: 1-0-0, CONTINUOUS MEDICATION
     Route: 048
  5. ZOPICLON [Concomitant]
     Active Substance: ZOPICLONE
     Indication: SLEEP DISORDER
     Dosage: 0-0-1, CONTINUOUS MEDICATION
     Route: 048

REACTIONS (7)
  - Haematemesis [Not Recovered/Not Resolved]
  - Headache [Not Recovered/Not Resolved]
  - Drug ineffective [Unknown]
  - Vomiting [Not Recovered/Not Resolved]
  - Arthralgia [Not Recovered/Not Resolved]
  - Pain in extremity [Not Recovered/Not Resolved]
  - Rash pruritic [Not Recovered/Not Resolved]

NARRATIVE: CASE EVENT DATE: 20190121
